FAERS Safety Report 14210207 (Version 1)
Quarter: 2017Q4

REPORT INFORMATION
  Report Type: Spontaneous
  Country: TG (occurrence: TG)
  Receive Date: 20171121
  Receipt Date: 20171121
  Transmission Date: 20180321
  Serious: Yes (Other)
  Sender: FDA-Public Use
  Company Number: TG-PFIZER INC-2017496887

PATIENT
  Age: 45 Year
  Sex: Male

DRUGS (1)
  1. VIAGRA [Suspect]
     Active Substance: SILDENAFIL CITRATE
     Dosage: 50 MG, SINGLE
     Route: 048

REACTIONS (2)
  - Hemiparesis [Unknown]
  - Cerebrovascular accident [Unknown]
